FAERS Safety Report 5339394-1 (Version None)
Quarter: 2007Q2

REPORT INFORMATION
  Report Type: 
  Country: None (occurrence: None)
  Receive Date: 20070322
  Receipt Date: 20061228
  Transmission Date: 20071010
  Serious: Yes (Other)
  Sender: FDA-Public Use
  Company Number: 200614055BCC

PATIENT
  Age: 23 Year
  Sex: Male
  Weight: 88.4514 kg

DRUGS (2)
  1. ALEVE (CAPLET) [Suspect]
     Indication: OEDEMA PERIPHERAL
     Dosage: 220 MG, ONCE, ORAL
     Route: 048
     Dates: start: 20060920
  2. MOTRIN [Suspect]
     Indication: OEDEMA PERIPHERAL
     Dates: start: 20060920

REACTIONS (4)
  - DYSPHONIA [None]
  - HYPERSENSITIVITY [None]
  - SWELLING FACE [None]
  - THROAT IRRITATION [None]
